FAERS Safety Report 12174121 (Version 1)
Quarter: 2016Q1

REPORT INFORMATION
  Report Type: Spontaneous
  Country: US (occurrence: US)
  Receive Date: 20160314
  Receipt Date: 20160314
  Transmission Date: 20160526
  Serious: Yes (Hospitalization)
  Sender: FDA-Public Use
  Company Number: US-AMGEN-USASP2016023121

PATIENT
  Age: 91 Year
  Sex: Male
  Weight: 69.85 kg

DRUGS (4)
  1. XGEVA [Suspect]
     Active Substance: DENOSUMAB
     Indication: PROSTATE CANCER METASTATIC
  2. LEUPROLIDE                         /00726901/ [Concomitant]
     Dosage: UNK
  3. ABIRATERONE [Concomitant]
     Active Substance: ABIRATERONE
     Dosage: UNK
  4. XGEVA [Suspect]
     Active Substance: DENOSUMAB
     Indication: METASTASES TO BONE
     Dosage: 120 MG, Q4WK
     Route: 058
     Dates: start: 20150811

REACTIONS (8)
  - Decreased appetite [Unknown]
  - Fatigue [Unknown]
  - Eye disorder [Unknown]
  - Gait disturbance [Unknown]
  - Asthenia [Unknown]
  - Lethargy [Unknown]
  - Dizziness [Unknown]
  - Hypersomnia [Unknown]

NARRATIVE: CASE EVENT DATE: 20160223
